FAERS Safety Report 17923130 (Version 1)
Quarter: 2020Q2

REPORT INFORMATION
  Report Type: Spontaneous
  Country: TW (occurrence: TW)
  Receive Date: 20200622
  Receipt Date: 20200622
  Transmission Date: 20200714
  Serious: Yes (Other)
  Sender: FDA-Public Use
  Company Number: TW-FRESENIUS KABI-FK202006172

PATIENT
  Age: 20 Year
  Sex: Male

DRUGS (2)
  1. ADENOSINE INJECTION (MANUFACTURER UNKNOWN) [Suspect]
     Active Substance: ADENOSINE
     Indication: SUPRAVENTRICULAR TACHYCARDIA
     Route: 065
  2. ADENOSINE INJECTION (MANUFACTURER UNKNOWN) [Suspect]
     Active Substance: ADENOSINE
     Route: 065

REACTIONS (7)
  - Acute kidney injury [Recovering/Resolving]
  - Hyperphosphataemia [Recovering/Resolving]
  - Metabolic acidosis [Recovering/Resolving]
  - Hyperuricaemia [Recovering/Resolving]
  - Hypocalcaemia [Recovering/Resolving]
  - Tumour lysis syndrome [Recovering/Resolving]
  - Urate nephropathy [Recovering/Resolving]
